FAERS Safety Report 10983727 (Version 1)
Quarter: 2015Q2

REPORT INFORMATION
  Report Type: Spontaneous
  Country: IT (occurrence: None)
  Receive Date: 20150401
  Receipt Date: 20150401
  Transmission Date: 20150821
  Serious: Yes (Other)
  Sender: FDA-Public Use
  Company Number: INT_00726_2015

PATIENT
  Age: 25 Year
  Sex: Male

DRUGS (6)
  1. GM COLONY STIMULATING FACTOR (GRANULOCYTEMACROPHAGE COLONY-STIMULATING FACTOR)? [Suspect]
     Active Substance: GRANULOCYTE COLONY-STIMULATING FACTOR NOS
     Indication: EXTRAGONADAL PRIMARY GERM CELL TUMOUR
     Dosage: DAYS 2,
  2. CARBOPLATIN (CARBOPLATIN) [Suspect]
     Active Substance: CARBOPLATIN
     Indication: EXTRAGONADAL PRIMARY GERM CELL TUMOUR
     Dosage: AUC 20 DIVIDUED INTO FOUR DOSES GIVEN ON DAYS 1, 2, 3 AND 4
  3. ETOPOSIDE (ETOPOSIDE) [Suspect]
     Active Substance: ETOPOSIDE
     Indication: EXTRAGONADAL PRIMARY GERM CELL TUMOUR
     Dosage: 100 MG/M2 (DAYS 1-5 AT 3-WEEK INTERVALS
  4. BLEOMYCIN [Suspect]
     Active Substance: BLEOMYCIN SULFATE
     Indication: EXTRAGONADAL PRIMARY GERM CELL TUMOUR
     Dosage: 30 IU, DAYS 2, 9 AND 16 AT 3-WEEK INTERVALS
  5. CYCLOPHOSPHAMIDE (CYCLOPHOSPHAMIDE) [Suspect]
     Active Substance: CYCLOPHOSPHAMIDE
     Dosage: 6400 MG/M2 (DIVIDED INTO FOUR DOSES GIVEN ON DAYS 1, 2, 3  AND 4)
  6. CISPLATIN (CISPLATIN) (HQ SPECIALTY) [Suspect]
     Active Substance: CISPLATIN
     Indication: EXTRAGONADAL PRIMARY GERM CELL TUMOUR
     Dosage: 20 MG/M2 (DAYS 1-5 AT 3-WEEK INTERVALS)

REACTIONS (7)
  - Stomatitis [None]
  - Drug-induced liver injury [None]
  - Alpha 1 foetoprotein increased [None]
  - Neutropenia [None]
  - Thrombocytopenia [None]
  - Alanine aminotransferase increased [None]
  - Aspartate aminotransferase increased [None]
